FAERS Safety Report 6699318-1 (Version None)
Quarter: 2010Q2

REPORT INFORMATION
  Report Type: 
  Country: None (occurrence: None)
  Receive Date: 20100426
  Receipt Date: 20100409
  Transmission Date: 20101027
  Serious: Yes (Hospitalization)
  Sender: FDA-Public Use
  Company Number: FR-001803

PATIENT
  Age: 9 Year
  Sex: Male

DRUGS (2)
  1. MINIRIN [Suspect]
     Indication: DIABETES INSIPIDUS
     Dosage: 960 UG, 960 UG SUBLINGUAL
     Route: 060
     Dates: start: 20100310, end: 20100101
  2. MINIRIN [Suspect]
     Indication: DIABETES INSIPIDUS
     Dosage: 960 UG, 960 UG SUBLINGUAL
     Route: 060
     Dates: start: 20100410, end: 20100412

REACTIONS (3)
  - DRUG INEFFECTIVE [None]
  - POLYDIPSIA [None]
  - WEIGHT DECREASED [None]
